FAERS Safety Report 9123046 (Version 1)
Quarter: 2013Q1

REPORT INFORMATION
  Report Type: Spontaneous
  Country: BR (occurrence: BR)
  Receive Date: 20130115
  Receipt Date: 20130115
  Transmission Date: 20140127
  Serious: Yes (Disabling, Other)
  Sender: FDA-Public Use
  Company Number: PHHY2013BR002743

PATIENT
  Age: 64 Year
  Sex: Female
  Weight: 69 kg

DRUGS (8)
  1. DIOVAN HCT [Suspect]
     Indication: HYPERTENSION
     Dosage: 1 DF, (80 MG VALS/ 12,5 HYDRO)
     Route: 048
     Dates: start: 201109, end: 201111
  2. DIOVAN HCT [Suspect]
     Dosage: 1 DF, (160 MG VALS/ 25 MG HYDRO)
  3. ASPIRIN ^BAYER^ [Suspect]
  4. STILNOX [Concomitant]
     Indication: INSOMNIA
     Dosage: 1 DF, UNK
     Route: 048
  5. REFRESH                            /00880201/ [Concomitant]
     Dosage: 1 DF, UNK
     Dates: start: 1985
  6. ISOFLAVON [Concomitant]
     Dosage: 1 DF, UNK
     Route: 048
     Dates: start: 200203
  7. GLUCOSAMINE SULFATE [Concomitant]
     Indication: ARTHRITIS
     Dosage: 1 DF, UNK
     Route: 048
     Dates: start: 2009
  8. DAFORIN [Concomitant]
     Indication: DEPRESSION
     Dosage: 1 DF, UNK
     Route: 048
     Dates: start: 2009

REACTIONS (6)
  - Cerebrovascular accident [Recovered/Resolved with Sequelae]
  - Speech disorder [Not Recovered/Not Resolved]
  - Hypertension [Unknown]
  - Cardiac disorder [Recovered/Resolved]
  - Blood cholesterol increased [Unknown]
  - Fluid retention [Unknown]
